FAERS Safety Report 20724139 (Version 3)
Quarter: 2022Q2

REPORT INFORMATION
  Report Type: Report from Study
  Country: US (occurrence: US)
  Receive Date: 20220419
  Receipt Date: 20220429
  Transmission Date: 20220720
  Serious: Yes (Life-Threatening, Other)
  Sender: FDA-Public Use
  Company Number: US-JNJFOC-20220415176

PATIENT
  Age: 70 Year
  Sex: Female

DRUGS (13)
  1. SPRAVATO [Suspect]
     Active Substance: ESKETAMINE
     Indication: Depression
     Dosage: 56 MG, 2 TOTAL DOSES
     Dates: start: 20220329, end: 20220401
  2. SPRAVATO [Suspect]
     Active Substance: ESKETAMINE
     Dates: start: 20220404, end: 20220404
  3. SPRAVATO [Suspect]
     Active Substance: ESKETAMINE
     Dosage: 56 MG, 2 DOSES
     Dates: start: 20220407, end: 20220411
  4. SPRAVATO [Suspect]
     Active Substance: ESKETAMINE
     Dosage: 84 MG, 4 DOSES
     Dates: start: 20220414, end: 20220425
  5. REXULTI [Concomitant]
     Active Substance: BREXPIPRAZOLE
  6. CLOZAPINE [Concomitant]
     Active Substance: CLOZAPINE
  7. HYDROXYZINE [Concomitant]
     Active Substance: HYDROXYZINE HYDROCHLORIDE
  8. MIRTAZAPINE [Concomitant]
     Active Substance: MIRTAZAPINE
  9. INSULIN NOS [Concomitant]
     Active Substance: INSULIN NOS
  10. ASPIRIN [Concomitant]
     Active Substance: ASPIRIN
  11. MELATONIN [Concomitant]
     Active Substance: MELATONIN
  12. ERGOCALCIFEROL [Concomitant]
     Active Substance: ERGOCALCIFEROL
  13. LEVOTHYROXINE [Concomitant]
     Active Substance: LEVOTHYROXINE

REACTIONS (2)
  - Intentional self-injury [Recovering/Resolving]
  - Dissociation [Recovered/Resolved]

NARRATIVE: CASE EVENT DATE: 20220404
